FAERS Safety Report 7338161-7 (Version None)
Quarter: 2011Q1

REPORT INFORMATION
  Report Type: 
  Country: None (occurrence: None)
  Receive Date: 20110308
  Receipt Date: 20110223
  Transmission Date: 20110831
  Serious: Yes (Hospitalization)
  Sender: FDA-Public Use
  Company Number: FR-ELI_LILLY_AND_COMPANY-FR201103000548

PATIENT
  Sex: Female

DRUGS (5)
  1. FORLAX [Concomitant]
  2. INIPOMP [Concomitant]
     Dosage: 20 MG, DAILY (1/D)
     Dates: start: 20080310, end: 20080314
  3. CYMBALTA [Suspect]
     Indication: DEPRESSION
     Dosage: 60 MG, DAILY (1/D)
     Route: 048
     Dates: start: 20080314, end: 20080318
  4. STRESAM [Concomitant]
  5. MEPRONIZINE [Concomitant]

REACTIONS (2)
  - ANGIOEDEMA [None]
  - RASH [None]
